FAERS Safety Report 5424855-7 (Version None)
Quarter: 2007Q3

REPORT INFORMATION
  Report Type: 
  Country: None (occurrence: None)
  Receive Date: 20070822
  Receipt Date: 20070809
  Transmission Date: 20080115
  Serious: Yes (Life-Threatening, Hospitalization, Other)
  Sender: FDA-Public Use
  Company Number: 2007US001919

PATIENT
  Age: 55 Year
  Sex: Female

DRUGS (4)
  1. PROGRAF [Suspect]
     Indication: PROPHYLAXIS AGAINST TRANSPLANT REJECTION
  2. MYCOPHENOLATE MOFETIL [Concomitant]
  3. PREDNISONE TAB [Concomitant]
  4. ALENDRONATE SODIUM [Concomitant]

REACTIONS (17)
  - ANAEMIA [None]
  - BRAIN ABSCESS [None]
  - DEEP VEIN THROMBOSIS [None]
  - DIABETES MELLITUS [None]
  - FALL [None]
  - FOOD POISONING [None]
  - HEPATOMEGALY [None]
  - INAPPROPRIATE ANTIDIURETIC HORMONE SECRETION [None]
  - KIDNEY TRANSPLANT REJECTION [None]
  - LIVER FUNCTION TEST ABNORMAL [None]
  - NEPHROPATHY TOXIC [None]
  - NIGHT SWEATS [None]
  - PLEURAL EFFUSION [None]
  - PULMONARY EMBOLISM [None]
  - ROAD TRAFFIC ACCIDENT [None]
  - THROMBOCYTOPENIA [None]
  - URINARY TRACT INFECTION ENTEROCOCCAL [None]
